FAERS Safety Report 14132898 (Version 1)
Quarter: 2017Q4

REPORT INFORMATION
  Report Type: Spontaneous
  Country: US (occurrence: US)
  Receive Date: 20171026
  Receipt Date: 20171026
  Transmission Date: 20180321
  Serious: Yes (Hospitalization)
  Sender: FDA-Public Use
  Company Number: None

PATIENT
  Age: 40 Year
  Sex: Female
  Weight: 114.4 kg

DRUGS (3)
  1. SAXENDA [Suspect]
     Active Substance: LIRAGLUTIDE
     Indication: OBESITY
     Route: 058
  2. TERBINAFINE. [Concomitant]
     Active Substance: TERBINAFINE
  3. MELOXICAM. [Concomitant]
     Active Substance: MELOXICAM

REACTIONS (4)
  - Crohn^s disease [None]
  - Nausea [None]
  - Abdominal pain [None]
  - Intestinal obstruction [None]

NARRATIVE: CASE EVENT DATE: 20171024
